FAERS Safety Report 23890300 (Version 2)
Quarter: 2024Q2

REPORT INFORMATION
  Report Type: Spontaneous
  Country: PL (occurrence: PL)
  Receive Date: 20240523
  Receipt Date: 20240611
  Transmission Date: 20240716
  Serious: Yes (Hospitalization)
  Sender: FDA-Public Use
  Company Number: PL-ROCHE-3563553

PATIENT
  Age: 54 Year
  Sex: Female
  Weight: 63.7 kg

DRUGS (17)
  1. CARBOPLATIN [Suspect]
     Active Substance: CARBOPLATIN
     Indication: Non-small cell lung cancer metastatic
     Dosage: 658 MG, 3X A WEEK
     Route: 042
     Dates: start: 20230830
  2. PEMETREXED [Suspect]
     Active Substance: PEMETREXED
     Indication: Non-small cell lung cancer metastatic
     Dosage: 3X A WEEK, SHE RECEIVED THE MOST RECENT DOSE PRIOR TO SAE (840 MG)
     Route: 042
     Dates: start: 20230830
  3. PEMETREXED [Suspect]
     Active Substance: PEMETREXED
     Dosage: SHE RECEIVED THE MOST RECENT DOSE PRIOR TO SAE (840 MG)
     Dates: start: 20240418
  4. ATEZOLIZUMAB [Concomitant]
     Active Substance: ATEZOLIZUMAB
     Indication: Non-small cell lung cancer metastatic
     Dosage: 3X A WEEK, SHE RECEIVED THE MOST RECENT DOSE PRIOR TO SAE
     Dates: start: 20230830
  5. ATEZOLIZUMAB [Concomitant]
     Active Substance: ATEZOLIZUMAB
     Dosage: SHE RECEIVED THE MOST RECENT DOSE PRIOR TO SAE
     Dates: start: 20240418
  6. PEMBROLIZUMAB [Concomitant]
     Active Substance: PEMBROLIZUMAB
     Indication: Non-small cell lung cancer metastatic
     Dosage: HE RECEIVED THE MOST RECENT DOSE PRIOR TO SAE
     Dates: start: 20230830
  7. TIRAGOLUMAB [Concomitant]
     Active Substance: TIRAGOLUMAB
     Indication: Non-small cell lung cancer metastatic
     Dosage: UNK
     Dates: start: 20230830
  8. TIRAGOLUMAB [Concomitant]
     Active Substance: TIRAGOLUMAB
     Dosage: SHE RECEIVED THE MOST RECENT DOSE PRIOR TO SAEUNK
     Dates: start: 20240418
  9. DEXAMETHASONE [Concomitant]
     Active Substance: DEXAMETHASONE
     Dosage: 4 MG (FREQ:0.5 D)
     Dates: start: 20240417, end: 20240419
  10. FOLIC ACID [Concomitant]
     Active Substance: FOLIC ACID
     Dosage: 400 MG, 1X/DAY
     Dates: start: 20230825
  11. ONDANSETRON [Concomitant]
     Active Substance: ONDANSETRON
     Dosage: 8 MG
     Dates: start: 20240418, end: 20240418
  12. FLUDROCORTISONE [Concomitant]
     Active Substance: FLUDROCORTISONE
     Indication: Addison^s disease
     Dosage: 0.1 MG
     Dates: start: 20240512
  13. SODIUM CHLORIDE [Concomitant]
     Active Substance: SODIUM CHLORIDE
     Indication: Hypercalcaemia
     Dosage: 500 ML
     Dates: start: 20240510, end: 20240514
  14. HYDROCORTISONE [Concomitant]
     Active Substance: HYDROCORTISONE\HYDROCORTISONE ACETATE
     Indication: Addison^s disease
     Dosage: 100 UNK
     Dates: start: 20240510, end: 20240510
  15. HYDROCORTISONE [Concomitant]
     Active Substance: HYDROCORTISONE\HYDROCORTISONE ACETATE
     Dosage: 30 MG
     Dates: start: 20240512, end: 20240513
  16. HYDROCORTISONE [Concomitant]
     Active Substance: HYDROCORTISONE\HYDROCORTISONE ACETATE
     Dosage: 50 MG
     Dates: start: 20240311, end: 20240311
  17. HYDROCORTISONE [Concomitant]
     Active Substance: HYDROCORTISONE\HYDROCORTISONE ACETATE
     Dosage: 20 MG
     Dates: start: 20240514

REACTIONS (3)
  - Asthenia [Recovered/Resolved]
  - Electrolyte imbalance [Recovering/Resolving]
  - Off label use [Unknown]

NARRATIVE: CASE EVENT DATE: 20230830
